FAERS Safety Report 9503575 (Version 3)
Quarter: 2013Q4

REPORT INFORMATION
  Report Type: Spontaneous
  Country: JP (occurrence: JP)
  Receive Date: 20130906
  Receipt Date: 20131001
  Transmission Date: 20140711
  Serious: Yes (Death, Other)
  Sender: FDA-Public Use
  Company Number: JP-ELI_LILLY_AND_COMPANY-JP201308007167

PATIENT
  Age: 60 Year
  Sex: Male

DRUGS (2)
  1. GEMZAR [Suspect]
     Indication: PANCREATIC CARCINOMA
     Dosage: UNK
     Route: 042
     Dates: start: 2013, end: 201308
  2. TS-1 /02422201/ [Suspect]
     Indication: PANCREATIC CARCINOMA
     Dosage: UNK
     Route: 048
     Dates: start: 2013, end: 201308

REACTIONS (4)
  - Neoplasm progression [Fatal]
  - Trousseau^s syndrome [Unknown]
  - Blood viscosity increased [Unknown]
  - Hypoaesthesia [Not Recovered/Not Resolved]
